FAERS Safety Report 20394932 (Version 1)
Quarter: 2022Q1

REPORT INFORMATION
  Report Type: Spontaneous
  Country: PT (occurrence: PT)
  Receive Date: 20220130
  Receipt Date: 20220130
  Transmission Date: 20220423
  Serious: Yes (Hospitalization, Other)
  Sender: FDA-Public Use
  Company Number: PT-JAZZ-2020-PT-013774

PATIENT
  Age: 18 Year
  Sex: Male

DRUGS (2)
  1. ASPARAGINASE [Suspect]
     Active Substance: ASPARAGINASE
     Indication: Acute lymphocytic leukaemia
     Dosage: UNKNOWN DOSE
     Route: 042
  2. ASPARAGINASE [Suspect]
     Active Substance: ASPARAGINASE
     Dosage: UNKNOWN DOSE
     Route: 037

REACTIONS (2)
  - Cerebral venous thrombosis [Unknown]
  - Incorrect route of product administration [Unknown]
